FAERS Safety Report 16255926 (Version 3)
Quarter: 2019Q2

REPORT INFORMATION
  Report Type: Spontaneous
  Country: US (occurrence: US)
  Receive Date: 20190430
  Receipt Date: 20190626
  Transmission Date: 20190711
  Serious: No
  Sender: FDA-Public Use
  Company Number: US-PFIZER INC-2019179317

PATIENT
  Age: 60 Year
  Sex: Male

DRUGS (10)
  1. METOPROLOL. [Concomitant]
     Active Substance: METOPROLOL
     Dosage: 50 MG, 1X/DAY (ER )
  2. GABAPENTIN. [Concomitant]
     Active Substance: GABAPENTIN
     Dosage: 600 MG, 4X/DAY
  3. FLEXERIL [Concomitant]
     Active Substance: CYCLOBENZAPRINE HYDROCHLORIDE
     Dosage: 10 MG, 3X/DAY
  4. LEVOTHYROXINE. [Concomitant]
     Active Substance: LEVOTHYROXINE
     Dosage: 225 UG, DAILY
  5. HCTZ [Concomitant]
     Active Substance: HYDROCHLOROTHIAZIDE
     Dosage: 25 MG, DAILY
  6. KLOR-CON [Concomitant]
     Active Substance: POTASSIUM CHLORIDE
     Dosage: UNK,  (M20 ER 2DAY)
  7. LODINE [Concomitant]
     Active Substance: ETODOLAC
     Dosage: 400 MG, 2X/DAY
  8. ROPINIROLE. [Concomitant]
     Active Substance: ROPINIROLE
     Dosage: 1 MG, DAILY
  9. LYRICA [Suspect]
     Active Substance: PREGABALIN
     Indication: NEURALGIA
     Dosage: 150 MG, 1X/DAY
     Dates: start: 2016
  10. TURMERIC [Concomitant]
     Active Substance: HERBALS\TURMERIC
     Dosage: 500 MG, 4X/DAY

REACTIONS (3)
  - Off label use [Unknown]
  - Product use issue [Unknown]
  - Limb discomfort [Recovered/Resolved]

NARRATIVE: CASE EVENT DATE: 2016
